FAERS Safety Report 4575469-2 (Version None)
Quarter: 2005Q1

REPORT INFORMATION
  Report Type: 
  Country: None (occurrence: None)
  Receive Date: 20050209
  Receipt Date: 20050203
  Transmission Date: 20050727
  Serious: Yes (Hospitalization)
  Sender: FDA-Public Use
  Company Number: 200510266EU

PATIENT
  Age: 49 Year
  Sex: Male

DRUGS (5)
  1. SEGURIL [Suspect]
     Indication: HYPERTENSION
     Route: 048
     Dates: start: 20021210, end: 20040401
  2. ALDACTONE [Suspect]
     Indication: HYPERTENSION
     Route: 048
     Dates: start: 20021210, end: 20040401
  3. SOLGOL [Concomitant]
  4. ANAGASTRA [Concomitant]
  5. NEOBRUFEN [Concomitant]

REACTIONS (1)
  - RENAL FAILURE ACUTE [None]
